FAERS Safety Report 13742005 (Version 1)
Quarter: 2017Q3

REPORT INFORMATION
  Report Type: Other
  Country: TR (occurrence: TR)
  Receive Date: 20170711
  Receipt Date: 20170711
  Transmission Date: 20171127
  Serious: Yes (Other)
  Sender: FDA-Public Use
  Company Number: TR-DEXPHARM-20170969

PATIENT
  Age: 42 Year
  Sex: Female

DRUGS (2)
  1. DICLOFENAC INJECTION [Suspect]
     Active Substance: DICLOFENAC
     Indication: MIGRAINE
  2. METOCLOPRAMIDE. [Suspect]
     Active Substance: METOCLOPRAMIDE
     Indication: MIGRAINE

REACTIONS (1)
  - Embolia cutis medicamentosa [Recovered/Resolved with Sequelae]
